FAERS Safety Report 9100333 (Version 2)
Quarter: 2016Q1

REPORT INFORMATION
  Report Type: Spontaneous
  Country: ES (occurrence: ES)
  Receive Date: 20130215
  Receipt Date: 20160223
  Transmission Date: 20160526
  Serious: Yes (Hospitalization, Other)
  Sender: FDA-Public Use
  Company Number: ES-BRISTOL-MYERS SQUIBB COMPANY-17357534

PATIENT
  Age: 68 Year
  Sex: Male

DRUGS (4)
  1. KYTRIL [Concomitant]
     Active Substance: GRANISETRON HYDROCHLORIDE
     Indication: VOMITING
     Dosage: KYTRIL 1 MG
     Route: 048
     Dates: start: 20120725
  2. PRIMPERAN [Concomitant]
     Active Substance: METOCLOPRAMIDE HYDROCHLORIDE
     Indication: VOMITING
     Dosage: 30 G, TID
     Route: 048
     Dates: start: 20120725
  3. VEPESID [Suspect]
     Active Substance: ETOPOSIDE
     Indication: GASTRIC CANCER
     Dosage: 300 MG, TID
     Route: 048
     Dates: start: 20120725, end: 20120726
  4. XENETIX [Suspect]
     Active Substance: IOBITRIDOL
     Indication: PRODUCT USED FOR UNKNOWN INDICATION
     Dosage: XENETIX 300 MG
     Route: 042
     Dates: start: 20120726, end: 20120726

REACTIONS (5)
  - Acute kidney injury [Recovered/Resolved]
  - Angioedema [Recovered/Resolved]
  - Nausea [Recovered/Resolved]
  - Product use issue [Unknown]
  - Urticaria [Recovered/Resolved]

NARRATIVE: CASE EVENT DATE: 20120726
